FAERS Safety Report 14517779 (Version 1)
Quarter: 2018Q1

REPORT INFORMATION
  Report Type: Spontaneous
  Country: US (occurrence: US)
  Receive Date: 20180212
  Receipt Date: 20180212
  Transmission Date: 20180509
  Serious: No
  Sender: FDA-Public Use
  Company Number: US-BAYER-2018-027365

PATIENT
  Age: 94 Year
  Sex: Female
  Weight: 45 kg

DRUGS (1)
  1. MIRALAX [Suspect]
     Active Substance: POLYETHYLENE GLYCOL 3350
     Dosage: 1/2 TEASPOON
     Route: 048

REACTIONS (2)
  - Product use issue [Unknown]
  - Underdose [Unknown]
